FAERS Safety Report 5648609-1 (Version None)
Quarter: 2008Q1

REPORT INFORMATION
  Report Type: 
  Country: None (occurrence: None)
  Receive Date: 20080303
  Receipt Date: 20080303
  Transmission Date: 20080703
  Serious: Yes (Death, Life-Threatening, Hospitalization)
  Sender: FDA-Public Use
  Company Number: None

PATIENT
  Age: 21 Year
  Sex: Male
  Weight: 79.3795 kg

DRUGS (2)
  1. METHADONE HCL [Suspect]
     Indication: TEMPOROMANDIBULAR JOINT SYNDROME
     Dosage: 1 3 TIMES DAILY PO
     Route: 048
     Dates: start: 20050824, end: 20050826
  2. LEXAPRO [Suspect]

REACTIONS (4)
  - BRAIN DEATH [None]
  - PNEUMONIA [None]
  - RESPIRATORY RATE DECREASED [None]
  - SNORING [None]
